FAERS Safety Report 22139927 (Version 1)
Quarter: 2023Q1

REPORT INFORMATION
  Report Type: Spontaneous
  Country: US (occurrence: US)
  Receive Date: 20230327
  Receipt Date: 20230327
  Transmission Date: 20230417
  Serious: No
  Sender: FDA-Public Use
  Company Number: US-JNJFOC-20230337513

PATIENT
  Age: 74 Year
  Sex: Female
  Weight: 90.7 kg

DRUGS (1)
  1. TYLENOL [Suspect]
     Active Substance: ACETAMINOPHEN
     Indication: Pain
     Dosage: 3 TO 4 TIMES A DAY
     Route: 065

REACTIONS (1)
  - Feeling abnormal [Unknown]
